FAERS Safety Report 9902714 (Version 1)
Quarter: 2014Q1

REPORT INFORMATION
  Report Type: Report from Study
  Country: CA (occurrence: CA)
  Receive Date: 20140217
  Receipt Date: 20140217
  Transmission Date: 20141002
  Serious: Yes (Other)
  Sender: FDA-Public Use
  Company Number: CA-JNJFOC-20140207123

PATIENT
  Age: 47 Year
  Sex: Female
  Weight: 56 kg

DRUGS (1)
  1. REMICADE [Suspect]
     Indication: CROHN^S DISEASE
     Route: 042

REACTIONS (3)
  - Ventricular tachycardia [Not Recovered/Not Resolved]
  - White blood cell count increased [Not Recovered/Not Resolved]
  - Asthenia [Not Recovered/Not Resolved]
